FAERS Safety Report 15666402 (Version 4)
Quarter: 2019Q3

REPORT INFORMATION
  Report Type: Spontaneous
  Country: US (occurrence: US)
  Receive Date: 20181128
  Receipt Date: 20190829
  Transmission Date: 20191004
  Serious: No
  Sender: FDA-Public Use
  Company Number: US-ACTELION-A-US2016-129980

PATIENT
  Sex: Male

DRUGS (7)
  1. BUPRENORPHINE. [Concomitant]
     Active Substance: BUPRENORPHINE
  2. OPSUMIT [Suspect]
     Active Substance: MACITENTAN
     Indication: PULMONARY HYPERTENSION
     Dosage: 10 MG, QD
     Route: 048
     Dates: start: 20140501
  3. LORAZEPAM. [Suspect]
     Active Substance: LORAZEPAM
     Indication: PRODUCT USED FOR UNKNOWN INDICATION
     Route: 065
  4. SUBOXONE [Suspect]
     Active Substance: BUPRENORPHINE HYDROCHLORIDE\NALOXONE HYDROCHLORIDE
     Indication: PRODUCT USED FOR UNKNOWN INDICATION
     Route: 065
  5. CELEXA [Concomitant]
     Active Substance: CITALOPRAM HYDROBROMIDE
  6. ADCIRCA [Concomitant]
     Active Substance: TADALAFIL
  7. NORCO [Suspect]
     Active Substance: ACETAMINOPHEN\HYDROCODONE BITARTRATE
     Indication: PRODUCT USED FOR UNKNOWN INDICATION
     Route: 065

REACTIONS (18)
  - Chills [Unknown]
  - Unevaluable event [Unknown]
  - Pain [Unknown]
  - Nausea [Unknown]
  - Feeling abnormal [Unknown]
  - Feeling cold [Unknown]
  - Nasal congestion [Unknown]
  - Sneezing [Unknown]
  - Insomnia [Unknown]
  - Viral infection [Unknown]
  - Drug dependence [Unknown]
  - Headache [Unknown]
  - Cough [Not Recovered/Not Resolved]
  - Pruritus [Unknown]
  - Dyspnoea [Unknown]
  - Generalised anxiety disorder [Unknown]
  - Nervousness [Unknown]
  - Nasopharyngitis [Unknown]
